FAERS Safety Report 10376479 (Version 4)
Quarter: 2015Q2

REPORT INFORMATION
  Report Type: Spontaneous
  Country: US (occurrence: US)
  Receive Date: 20140811
  Receipt Date: 20150626
  Transmission Date: 20150821
  Serious: Yes (Hospitalization, Other)
  Sender: FDA-Public Use
  Company Number: US-UCBSA-112652

PATIENT
  Age: 26 Year
  Sex: Female
  Weight: 65.77 kg

DRUGS (4)
  1. CIMZIA [Suspect]
     Active Substance: CERTOLIZUMAB PEGOL
     Dosage: 200 MG, EV 2 WEEKS(QOW)
     Dates: start: 2014, end: 201405
  2. PITOCIN [Concomitant]
     Active Substance: OXYTOCIN
     Indication: LABOUR INDUCTION
     Dosage: UNK
     Dates: start: 20140501
  3. CIMZIA [Suspect]
     Active Substance: CERTOLIZUMAB PEGOL
     Indication: RHEUMATOID ARTHRITIS
     Dosage: 200 MG, EV 2 WEEKS(QOW)
     Dates: start: 201301, end: 201310
  4. MAGNESIUM [Concomitant]
     Active Substance: MAGNESIUM
     Dosage: UNK
     Dates: start: 20140430

REACTIONS (7)
  - Rheumatoid arthritis [Not Recovered/Not Resolved]
  - Cystitis [Unknown]
  - Pregnancy [Unknown]
  - Breast feeding [Unknown]
  - Premature delivery [Unknown]
  - Pre-eclampsia [Not Recovered/Not Resolved]
  - Hyperreflexia [Unknown]

NARRATIVE: CASE EVENT DATE: 20130920
